FAERS Safety Report 5641069-6 (Version None)
Quarter: 2008Q1

REPORT INFORMATION
  Report Type: 
  Country: None (occurrence: None)
  Receive Date: 20080225
  Receipt Date: 20080214
  Transmission Date: 20080703
  Serious: Yes (Hospitalization)
  Sender: FDA-Public Use
  Company Number: GXKR2008GB01703

PATIENT
  Age: 72 Year
  Sex: Male

DRUGS (12)
  1. ALLOPURINOL [Suspect]
  2. CIPROFLOXACIN [Suspect]
     Indication: CHEMOTHERAPY
     Dates: start: 20070622, end: 20071116
  3. FLUCONAZOLE [Suspect]
     Indication: CHEMOTHERAPY
     Dates: start: 20070622, end: 20071116
  4. ONDANSETRON [Suspect]
  5. ACYCLOVIR [Suspect]
     Indication: CHEMOTHERAPY
     Dates: start: 20070622, end: 20071116
  6. ALENDRONATE SODIUM [Suspect]
     Indication: OSTEOPOROSIS
  7. SULFAMETHOXAZOLE W/TRIMETHOPRIM(SULFAMETHOXAZOLE , TRIMETHOPRIM) [Suspect]
  8. CYCLOPHOSPHAMIDE [Suspect]
     Indication: CHEMOTHERAPY
     Dates: start: 20070622, end: 20071116
  9. LANSOPRAZOLE [Suspect]
  10. PREDNISOLONE [Suspect]
     Indication: CHEMOTHERAPY
     Dates: start: 20070622, end: 20071116
  11. RITUXIMAB(RITUXIMAB) [Suspect]
     Indication: CHEMOTHERAPY
     Dates: start: 20070622, end: 20071116
  12. VINCRISTINE [Suspect]
     Indication: CHEMOTHERAPY
     Dates: start: 20070622, end: 20071116

REACTIONS (1)
  - TOXIC SKIN ERUPTION [None]
